FAERS Safety Report 4314522-5 (Version None)
Quarter: 2004Q1

REPORT INFORMATION
  Report Type: 
  Country: None (occurrence: None)
  Receive Date: 20040308
  Receipt Date: 20040223
  Transmission Date: 20041129
  Serious: Yes (Hospitalization)
  Sender: FDA-Public Use
  Company Number: 2004200820GB

PATIENT
  Age: 21 Year
  Sex: Male

DRUGS (1)
  1. DELTA-CORTEF [Suspect]
     Indication: FACIAL PALSY

REACTIONS (13)
  - ABSCESS [None]
  - BODY TEMPERATURE INCREASED [None]
  - FACIAL PAIN [None]
  - HEADACHE [None]
  - HEMIPARESIS [None]
  - HERPES ZOSTER [None]
  - NUCLEAR MAGNETIC RESONANCE IMAGING BRAIN ABNORMAL [None]
  - SIMPLE PARTIAL SEIZURES [None]
  - SOMNOLENCE [None]
  - SUBDURAL EMPYEMA [None]
  - SWELLING FACE [None]
  - TRISMUS [None]
  - VOMITING [None]
